FAERS Safety Report 8499049-1 (Version None)
Quarter: 2012Q3

REPORT INFORMATION
  Report Type: 
  Country: None (occurrence: None)
  Receive Date: 20120710
  Receipt Date: 20120702
  Transmission Date: 20120928
  Serious: Yes (Hospitalization, Disabling, Other)
  Sender: FDA-Public Use
  Company Number: US-MSD-1103USA00837

PATIENT

DRUGS (8)
  1. FOSAMAX [Suspect]
     Indication: OSTEOPENIA
     Dosage: 70 MG, UNK
     Route: 048
     Dates: start: 20050201, end: 20080301
  2. MAGNESIUM (UNSPECIFIED) [Concomitant]
     Dosage: 250 MG, QD
     Dates: start: 20070101
  3. MK-9278 [Concomitant]
     Dosage: UNK UNK, QD
     Dates: start: 20070101
  4. FOSAMAX [Suspect]
     Route: 048
     Dates: start: 20080201
  5. CALCIUM (UNSPECIFIED) [Concomitant]
     Indication: OSTEOPENIA
     Dosage: 500 MG, QD
     Dates: start: 20070101
  6. OMEGA-3 MARINE TRIGLYCERIDES [Concomitant]
     Dosage: 1200 MG, QD
     Dates: start: 20070101
  7. HORMONES (UNSPECIFIED) [Concomitant]
     Dates: start: 19900101, end: 20090401
  8. FOSAMAX [Suspect]
     Dosage: 70 MG, UNK
     Route: 048
     Dates: start: 20080301, end: 20100101

REACTIONS (9)
  - FEMUR FRACTURE [None]
  - LOW TURNOVER OSTEOPATHY [None]
  - BURSITIS [None]
  - FRACTURE [None]
  - BREAST DISORDER [None]
  - VITAMIN D DEFICIENCY [None]
  - PELVIC PROLAPSE [None]
  - BREAST CANCER [None]
  - ADVERSE EVENT [None]
